FAERS Safety Report 8775328 (Version 2)
Quarter: 2013Q4

REPORT INFORMATION
  Report Type: Spontaneous
  Country: US (occurrence: US)
  Receive Date: 20120910
  Receipt Date: 20131101
  Transmission Date: 20140711
  Serious: No
  Sender: FDA-Public Use
  Company Number: US-009507513-1208USA011193

PATIENT
  Age: 43 Year
  Sex: Male
  Weight: 105.21 kg

DRUGS (7)
  1. PEGINTRON [Suspect]
     Dosage: 0.5 ML, QW
     Route: 058
  2. PEG-INTRON [Suspect]
     Dosage: 50 UNK, UNK
  3. REBETOL [Suspect]
  4. CYANOCOBALAMIN [Concomitant]
  5. VITAMINS (UNSPECIFIED) [Concomitant]
  6. TYLENOL [Concomitant]
     Dosage: UNK, Q8H
  7. TELAPREVIR [Concomitant]

REACTIONS (5)
  - Anaemia [Unknown]
  - Rash [Unknown]
  - Pruritus [Unknown]
  - Dry skin [Unknown]
  - Chest pain [Unknown]
